FAERS Safety Report 4793586-9 (Version None)
Quarter: 2005Q4

REPORT INFORMATION
  Report Type: 
  Country: None (occurrence: None)
  Receive Date: 20051006
  Receipt Date: 20050919
  Transmission Date: 20060501
  Serious: Yes (Death)
  Sender: FDA-Public Use
  Company Number: PAR_0248_2005

PATIENT
  Age: 19 Year
  Sex: Male

DRUGS (2)
  1. DIAZEPAM [Suspect]
     Dosage: DF IH
     Route: 055
  2. DIPHENOXYLATE [Suspect]
     Dosage: DF IH
     Route: 055

REACTIONS (2)
  - INTENTIONAL DRUG MISUSE [None]
  - RESPIRATORY ARREST [None]
